FAERS Safety Report 7501464-7 (Version None)
Quarter: 2011Q2

REPORT INFORMATION
  Report Type: 
  Country: None (occurrence: None)
  Receive Date: 20110524
  Receipt Date: 20081017
  Transmission Date: 20111010
  Serious: Yes (Hospitalization, Other)
  Sender: FDA-Public Use
  Company Number: US-BAYER-200836312NA

PATIENT
  Age: 58 Year
  Sex: Female
  Weight: 100 kg

DRUGS (9)
  1. LIDOCAINE [Concomitant]
     Dosage: 5 MG, UNK
     Route: 042
     Dates: start: 20051201, end: 20051201
  2. TRASYLOL [Suspect]
     Indication: CORONARY ARTERY BYPASS
     Dosage: 50CC PER HOUR DRIP
     Route: 042
     Dates: start: 20050901, end: 20050901
  3. MAXIDEX [Concomitant]
     Dosage: UNK
     Route: 048
     Dates: start: 19890101
  4. HEPARIN [Concomitant]
     Dosage: UNK
     Route: 042
     Dates: start: 20050901, end: 20050901
  5. TOPROL-XL [Concomitant]
     Dosage: 25 MG, QD
  6. PROPOFOL [Concomitant]
     Dosage: UNK
     Route: 042
     Dates: start: 20050901, end: 20050901
  7. MANNITOL [Concomitant]
     Dosage: 100 MG, UNK
     Route: 042
     Dates: start: 20050901, end: 20050901
  8. TRASYLOL [Suspect]
     Indication: MITRAL VALVE REPLACEMENT
  9. VERSED [Concomitant]
     Dosage: UNK
     Route: 042
     Dates: start: 20050901, end: 20050901

REACTIONS (10)
  - CEREBROVASCULAR ACCIDENT [None]
  - RENAL IMPAIRMENT [None]
  - STRESS [None]
  - RENAL FAILURE [None]
  - RENAL INJURY [None]
  - FEAR [None]
  - EMOTIONAL DISTRESS [None]
  - PAIN [None]
  - ANXIETY [None]
  - UNEVALUABLE EVENT [None]
